FAERS Safety Report 7767744-5 (Version None)
Quarter: 2011Q3

REPORT INFORMATION
  Report Type: 
  Country: None (occurrence: None)
  Receive Date: 20110922
  Receipt Date: 20110209
  Transmission Date: 20111222
  Serious: No
  Sender: FDA-Public Use
  Company Number: US-ASTRAZENECA-2007UW05176

PATIENT
  Sex: Female
  Weight: 108.9 kg

DRUGS (5)
  1. SEROQUEL [Suspect]
     Indication: SLEEP DISORDER
     Dosage: 100 MG TO 1000 MG
     Route: 048
     Dates: start: 20000101, end: 20081028
  2. SEROQUEL [Suspect]
     Indication: POST-TRAUMATIC STRESS DISORDER
     Dosage: 100 MG TO 1000 MG
     Route: 048
     Dates: start: 20000101, end: 20081028
  3. DEPAKOTE [Concomitant]
     Dosage: 2000 QD
     Dates: start: 20050101
  4. RISPERDAL [Concomitant]
     Dates: start: 20010101, end: 20050101
  5. ZYMBALTA [Concomitant]
     Dates: start: 20061101

REACTIONS (6)
  - SKIN GRAFT [None]
  - BLOOD CHOLESTEROL INCREASED [None]
  - ROAD TRAFFIC ACCIDENT [None]
  - TYPE 2 DIABETES MELLITUS [None]
  - HYPERLIPIDAEMIA [None]
  - GLYCOSURIA [None]
